FAERS Safety Report 25839608 (Version 1)
Quarter: 2025Q3

REPORT INFORMATION
  Report Type: Spontaneous
  Country: CN (occurrence: CN)
  Receive Date: 20250924
  Receipt Date: 20250924
  Transmission Date: 20251021
  Serious: Yes (Other)
  Sender: GE HEALTHCARE
  Company Number: None

PATIENT
  Age: 61 Year
  Sex: Female

DRUGS (4)
  1. VISIPAQUE [Suspect]
     Active Substance: IODIXANOL
     Indication: Atherectomy
     Route: 013
     Dates: start: 20250821, end: 20250821
  2. VISIPAQUE [Suspect]
     Active Substance: IODIXANOL
     Indication: Arterial angioplasty
  3. VISIPAQUE [Suspect]
     Active Substance: IODIXANOL
     Indication: Peripheral artery stent insertion
  4. VISIPAQUE [Suspect]
     Active Substance: IODIXANOL
     Indication: Thrombectomy

REACTIONS (2)
  - Procedural pain [Recovering/Resolving]
  - Contrast media allergy [Recovering/Resolving]

NARRATIVE: CASE EVENT DATE: 20250821
